FAERS Safety Report 5261660-9 (Version None)
Quarter: 2007Q1

REPORT INFORMATION
  Report Type: 
  Country: None (occurrence: None)
  Receive Date: 20070308
  Receipt Date: 20070226
  Transmission Date: 20070707
  Serious: No
  Sender: FDA-Public Use
  Company Number: 011233

PATIENT
  Age: 15 Year
  Sex: Male
  Weight: 56.7 kg

DRUGS (1)
  1. CLARAVIS [Suspect]
     Indication: ACNE
     Dosage: 30 MG, BID, ORAL
     Route: 048
     Dates: start: 20061212, end: 20070226

REACTIONS (3)
  - APPENDICECTOMY [None]
  - ASTHENIA [None]
  - TREATMENT NONCOMPLIANCE [None]
